FAERS Safety Report 8570337-3 (Version None)
Quarter: 2012Q3

REPORT INFORMATION
  Report Type: 
  Country: None (occurrence: None)
  Receive Date: 20120803
  Receipt Date: 20120725
  Transmission Date: 20120928
  Serious: Yes (Other)
  Sender: FDA-Public Use
  Company Number: US-ASTRAZENECA-2010SE38872

PATIENT
  Age: 80 Year
  Sex: Female

DRUGS (5)
  1. KLOR-CON [Concomitant]
  2. NEXIUM [Suspect]
     Route: 048
  3. NEXIUM [Suspect]
     Route: 048
  4. PRILOSEC [Suspect]
     Route: 048
  5. PRILOSEC OTC [Suspect]
     Route: 048

REACTIONS (9)
  - BARRETT'S OESOPHAGUS [None]
  - SLEEP DISORDER DUE TO GENERAL MEDICAL CONDITION, INSOMNIA TYPE [None]
  - DRUG INEFFECTIVE [None]
  - GASTROOESOPHAGEAL REFLUX DISEASE [None]
  - HERPES OPHTHALMIC [None]
  - OFF LABEL USE [None]
  - NAUSEA [None]
  - DRUG DOSE OMISSION [None]
  - HERPES ZOSTER [None]
